FAERS Safety Report 5722239-5 (Version None)
Quarter: 2008Q2

REPORT INFORMATION
  Report Type: 
  Country: None (occurrence: None)
  Receive Date: 20080424
  Receipt Date: 20080409
  Transmission Date: 20081010
  Serious: Yes (Hospitalization)
  Sender: FDA-Public Use
  Company Number: DSA_30811_2007

PATIENT
  Sex: Male

DRUGS (4)
  1. DILTIAZEM HYDROCHLORIDE [Suspect]
     Indication: HYPERTENSION
     Dosage: (90 MG 30X/3 DAYS ORAL)
     Route: 048
     Dates: start: 19791201, end: 20020817
  2. RYTHMODAN /00271801/ (RYTHMODAN DISOPYRAMIDE) (NOT SPECIFIED) [Suspect]
     Indication: ATRIAL FIBRILLATION
     Dosage: (100 MG PRN ORAL)
     Route: 048
     Dates: end: 20020817
  3. BLOPRESS [Concomitant]
     Indication: PALPITATIONS
  4. PROTEROL-L [Concomitant]

REACTIONS (8)
  - ATRIAL FIBRILLATION [None]
  - BLOOD PRESSURE DIASTOLIC DECREASED [None]
  - BLOOD PRESSURE SYSTOLIC INCREASED [None]
  - BRADYCARDIA [None]
  - NODAL RHYTHM [None]
  - PRESYNCOPE [None]
  - SINUS ARREST [None]
  - SOMNOLENCE [None]
